FAERS Safety Report 8366942-X (Version None)
Quarter: 2012Q2

REPORT INFORMATION
  Report Type: 
  Country: None (occurrence: None)
  Receive Date: 20120515
  Receipt Date: 20120515
  Transmission Date: 20120825
  Serious: Yes (Hospitalization)
  Sender: FDA-Public Use
  Company Number: None

PATIENT
  Sex: Female

DRUGS (2)
  1. VENLAFAXINE [Suspect]
     Dosage: 37.5 MG QD P.O.
     Route: 048
     Dates: start: 20120501, end: 20120509
  2. VENLAFAXINE [Suspect]
     Indication: PANIC DISORDER
     Dosage: 150 MG QD P.O.
     Route: 048
     Dates: start: 20120501, end: 20120509

REACTIONS (4)
  - DRUG WITHDRAWAL SYNDROME [None]
  - ANXIETY [None]
  - SUICIDAL IDEATION [None]
  - PRODUCT SUBSTITUTION ISSUE [None]
